FAERS Safety Report 5645881-9 (Version None)
Quarter: 2008Q1

REPORT INFORMATION
  Report Type: 
  Country: None (occurrence: None)
  Receive Date: 20080229
  Receipt Date: 20080226
  Transmission Date: 20080703
  Serious: Yes (Death, Hospitalization)
  Sender: FDA-Public Use
  Company Number: JP-PFIZER INC-2008012133

PATIENT
  Age: 76 Year
  Sex: Male

DRUGS (2)
  1. ZOLOFT [Suspect]
     Indication: DEPRESSION
     Dosage: DAILY DOSE:100MG
     Route: 048
  2. TOLEDOMIN [Suspect]
     Indication: DEPRESSION
     Dosage: DAILY DOSE:75MG
     Route: 048
     Dates: start: 20071001, end: 20080101

REACTIONS (3)
  - GENERAL PHYSICAL HEALTH DETERIORATION [None]
  - HEPATIC FUNCTION ABNORMAL [None]
  - RESPIRATORY FAILURE [None]
